FAERS Safety Report 25839126 (Version 1)
Quarter: 2025Q3

REPORT INFORMATION
  Report Type: Spontaneous
  Country: US (occurrence: US)
  Receive Date: 20250924
  Receipt Date: 20250924
  Transmission Date: 20251021
  Serious: Yes (Other)
  Sender: ROCHE
  Company Number: US-ROCHE-10000389247

PATIENT
  Age: 67 Year
  Sex: Female

DRUGS (2)
  1. XOLAIR [Suspect]
     Active Substance: OMALIZUMAB
     Indication: Asthma
     Route: 065
     Dates: start: 20250519
  2. XOLAIR [Suspect]
     Active Substance: OMALIZUMAB
     Indication: Eosinophil count increased

REACTIONS (5)
  - Palpitations [Not Recovered/Not Resolved]
  - Hypertension [Recovered/Resolved]
  - Ventricular extrasystoles [Not Recovered/Not Resolved]
  - Cardiac flutter [Unknown]
  - Supraventricular tachycardia [Unknown]

NARRATIVE: CASE EVENT DATE: 20250620
